FAERS Safety Report 14731525 (Version 2)
Quarter: 2018Q2

REPORT INFORMATION
  Report Type: Report from Study
  Country: US (occurrence: US)
  Receive Date: 20180407
  Receipt Date: 20180430
  Transmission Date: 20180711
  Serious: Yes (Other)
  Sender: FDA-Public Use
  Company Number: US-TEVA-2018-US-877813

PATIENT
  Age: 15 Year
  Sex: Male

DRUGS (4)
  1. CLOZAPINE. [Suspect]
     Active Substance: CLOZAPINE
     Route: 048
  2. LITHIUM. [Concomitant]
     Active Substance: LITHIUM
  3. ZOLOFT [Concomitant]
     Active Substance: SERTRALINE HYDROCHLORIDE
  4. PRAZOSIN. [Concomitant]
     Active Substance: PRAZOSIN

REACTIONS (1)
  - Granulocytopenia [Recovering/Resolving]

NARRATIVE: CASE EVENT DATE: 20180326
